FAERS Safety Report 8134323 (Version 3)
Quarter: 2015Q2

REPORT INFORMATION
  Report Type: Spontaneous
  Country: US (occurrence: US)
  Receive Date: 20110913
  Receipt Date: 20150409
  Transmission Date: 20150821
  Serious: No
  Sender: FDA-Public Use
  Company Number: US-ALLERGAN-1110420US

PATIENT
  Age: 42 Year
  Sex: Female

DRUGS (1)
  1. LATISSE [Suspect]
     Active Substance: BIMATOPROST
     Indication: GROWTH OF EYELASHES
     Dosage: 1 GTT, QHS

REACTIONS (2)
  - Erythema of eyelid [Not Recovered/Not Resolved]
  - Blepharal pigmentation [Not Recovered/Not Resolved]
